FAERS Safety Report 21422725 (Version 4)
Quarter: 2022Q4

REPORT INFORMATION
  Report Type: Spontaneous
  Country: US (occurrence: US)
  Receive Date: 20221007
  Receipt Date: 20221018
  Transmission Date: 20230112
  Serious: Yes (Other)
  Sender: FDA-Public Use
  Company Number: US-PFIZER INC-202201208625

PATIENT
  Age: 75 Year
  Sex: Female
  Weight: 85.73 kg

DRUGS (4)
  1. DEPO-MEDROL [Suspect]
     Active Substance: METHYLPREDNISOLONE ACETATE
     Indication: Systemic lupus erythematosus
     Dosage: 5 ML (USUALLY EVERY 2 OR 2 AND HALF MONTHS, WHEN JOINTS)
  2. DEPO-MEDROL [Suspect]
     Active Substance: METHYLPREDNISOLONE ACETATE
     Indication: Rheumatoid arthritis
     Dosage: 5 ML (200MG TOTAL, VIA INJECTION EVERY 2.5-3 MONTHS)
  3. DEPO-MEDROL [Suspect]
     Active Substance: METHYLPREDNISOLONE ACETATE
     Indication: Spinal stenosis
     Dosage: 8 ML, CYCLIC (EVERY TWO MONTHS)
  4. HYDROXYCHLOROQUINE [Concomitant]
     Active Substance: HYDROXYCHLOROQUINE
     Indication: Systemic lupus erythematosus
     Dosage: UNK (CALLER STATES THAT SHE HAS BEEN TAKING THIS MEDICATION FOR 5-6 YEARS)

REACTIONS (2)
  - Drug dependence [Unknown]
  - Product supply issue [Unknown]
